FAERS Safety Report 8584162-0 (Version None)
Quarter: 2012Q3

REPORT INFORMATION
  Report Type: 
  Country: None (occurrence: None)
  Receive Date: 20120810
  Receipt Date: 20120731
  Transmission Date: 20120928
  Serious: Yes (Hospitalization)
  Sender: FDA-Public Use
  Company Number: GB-AMGEN-GBRCT2012049016

PATIENT
  Age: 31 Year
  Sex: Female
  Weight: 75 kg

DRUGS (6)
  1. ALBUTEROL SULATE [Concomitant]
     Dosage: UNK
  2. ETANERCEPT [Suspect]
     Indication: PRODUCT USED FOR UNKNOWN INDICATION
     Dosage: 50 MG, WEEKLY ONCE PER WEEK
     Dates: start: 20110119, end: 20120603
  3. BECLOMETHASONE DIPROPIONATE [Concomitant]
     Dosage: UNK
  4. FOLIC ACID [Concomitant]
     Dosage: UNK
  5. METHOTREXATE [Concomitant]
     Dosage: UNK
     Dates: start: 20080101
  6. PYRIDOXINE HCL [Concomitant]
     Dosage: UNK

REACTIONS (1)
  - PSORIASIS [None]
